FAERS Safety Report 10561726 (Version 2)
Quarter: 2015Q1

REPORT INFORMATION
  Report Type: Spontaneous
  Country: US (occurrence: US)
  Receive Date: 20141103
  Receipt Date: 20150205
  Transmission Date: 20150720
  Serious: Yes (Hospitalization)
  Sender: FDA-Public Use
  Company Number: US-GILEAD-2014-0121069

PATIENT
  Age: 61 Year
  Sex: Female

DRUGS (13)
  1. HYDROXYCHLOROQUINE [Concomitant]
     Active Substance: HYDROXYCHLOROQUINE
  2. HUMALOG [Concomitant]
     Active Substance: INSULIN LISPRO
  3. COUMADIN [Concomitant]
     Active Substance: WARFARIN SODIUM
  4. PREDNISONE. [Concomitant]
     Active Substance: PREDNISONE
  5. LASIX [Concomitant]
     Active Substance: FUROSEMIDE
  6. SPIRONOLACTONE. [Concomitant]
     Active Substance: SPIRONOLACTONE
  7. REMODULIN [Suspect]
     Active Substance: TREPROSTINIL
     Indication: PULMONARY ARTERIAL HYPERTENSION
     Dosage: UNK
     Route: 065
  8. POTASSIUM [Concomitant]
     Active Substance: POTASSIUM
  9. LANTUS [Concomitant]
     Active Substance: INSULIN GLARGINE
  10. LETAIRIS [Suspect]
     Active Substance: AMBRISENTAN
     Indication: SYSTEMIC SCLEROSIS
  11. VITAMIN D [Concomitant]
     Active Substance: CHOLECALCIFEROL
  12. LETAIRIS [Suspect]
     Active Substance: AMBRISENTAN
     Indication: PULMONARY HYPERTENSION
     Dosage: 10 MG, QD
     Route: 065
     Dates: start: 20130122
  13. GABAPENTIN. [Concomitant]
     Active Substance: GABAPENTIN

REACTIONS (2)
  - Heart rate increased [Unknown]
  - Dyspnoea [Unknown]
